FAERS Safety Report 8860620 (Version 2)
Quarter: 2012Q4

REPORT INFORMATION
  Report Type: 
  Country: PL (occurrence: PL)
  Receive Date: 20121025
  Receipt Date: 20121109
  Transmission Date: 20130627
  Serious: Yes (Other)
  Sender: FDA-Public Use
  Company Number: PL-ROCHE-1147705

PATIENT
  Age: 32 Year
  Sex: Female
  Weight: 55 kg

DRUGS (7)
  1. OMALIZUMAB [Suspect]
     Indication: ASTHMA
     Route: 065
     Dates: start: 2006
  2. OMALIZUMAB [Suspect]
     Route: 065
     Dates: start: 2007
  3. OMALIZUMAB [Suspect]
     Route: 065
     Dates: start: 2010
  4. METHYLPREDNISOLONE [Concomitant]
  5. FLUTICASONE [Concomitant]
  6. FORMOTEROL [Concomitant]
  7. SALBUTAMOL [Concomitant]

REACTIONS (3)
  - Lower respiratory tract infection [Unknown]
  - Asthma [Unknown]
  - Maternal exposure during pregnancy [Unknown]
